FAERS Safety Report 7391947-5 (Version None)
Quarter: 2011Q2

REPORT INFORMATION
  Report Type: 
  Country: None (occurrence: None)
  Receive Date: 20110404
  Receipt Date: 20110329
  Transmission Date: 20111010
  Serious: Yes (Hospitalization, Other)
  Sender: FDA-Public Use
  Company Number: US-TEVA-270300USA

PATIENT
  Sex: Female

DRUGS (5)
  1. CLARAVIS [Suspect]
     Indication: KERATOSIS FOLLICULAR
     Route: 048
     Dates: end: 20110222
  2. ORAL CONTRACEPTIVE NOS [Concomitant]
  3. VALACYCLOVIR HCL [Concomitant]
  4. CLARAVIS [Suspect]
     Route: 048
  5. LUNESTA [Concomitant]

REACTIONS (3)
  - SUICIDAL IDEATION [None]
  - DEPRESSION [None]
  - CHLOASMA [None]
